FAERS Safety Report 15988085 (Version 2)
Quarter: 2019Q2

REPORT INFORMATION
  Report Type: Spontaneous
  Country: US (occurrence: US)
  Receive Date: 20190220
  Receipt Date: 20190411
  Transmission Date: 20190711
  Serious: No
  Sender: FDA-Public Use
  Company Number: US-ASTRAZENECA-2019SE14542

PATIENT
  Sex: Male

DRUGS (1)
  1. BEVESPI AEROSPHERE [Suspect]
     Active Substance: FORMOTEROL FUMARATE\GLYCOPYRROLATE
     Dosage: 9/4.8 MCG, 2 PUFFS, TWO TIMES A DAY
     Route: 055

REACTIONS (6)
  - Product use issue [Unknown]
  - Incorrect dose administered [Unknown]
  - Product dose omission [Unknown]
  - Off label use [Unknown]
  - Dyspnoea [Unknown]
  - Device failure [Unknown]
